FAERS Safety Report 17063426 (Version 1)
Quarter: 2019Q4

REPORT INFORMATION
  Report Type: Spontaneous
  Country: US (occurrence: US)
  Receive Date: 20191023
  Receipt Date: 20191023
  Transmission Date: 20200122
  Serious: No
  Sender: FDA-Public Use
  Company Number: None

PATIENT
  Age: 75 Year
  Sex: Female

DRUGS (1)
  1. BEXAROTENE 75MG MYLAN [Suspect]
     Active Substance: BEXAROTENE
     Indication: LYMPHOMA
     Route: 048
     Dates: start: 20190507

REACTIONS (3)
  - Diarrhoea [None]
  - Loss of personal independence in daily activities [None]
  - Frequent bowel movements [None]

NARRATIVE: CASE EVENT DATE: 20190507
